FAERS Safety Report 10448005 (Version 1)
Quarter: 2014Q3

REPORT INFORMATION
  Report Type: Spontaneous
  Country: US (occurrence: US)
  Receive Date: 20140911
  Receipt Date: 20140911
  Transmission Date: 20150326
  Serious: No
  Sender: FDA-Public Use
  Company Number: US-BAYER-2014-135366

PATIENT
  Age: 47 Year
  Sex: Female
  Weight: 78.46 kg

DRUGS (3)
  1. CLIMARA [Suspect]
     Active Substance: ESTRADIOL
     Indication: MENOPAUSAL SYMPTOMS
     Dosage: 0.05 MG/24HR, OW
     Route: 062
     Dates: start: 201407
  2. SYNTHROID [Concomitant]
     Active Substance: LEVOTHYROXINE SODIUM
     Indication: HYPOTHYROIDISM
     Dosage: 60 MG, QD
     Route: 048
     Dates: start: 2007
  3. PROGESTERONE. [Concomitant]
     Active Substance: PROGESTERONE
     Indication: MENOPAUSE
     Dosage: 100 MG/24HR, QD
     Route: 048
     Dates: start: 2012

REACTIONS (2)
  - Product adhesion issue [None]
  - Medication error [None]

NARRATIVE: CASE EVENT DATE: 2014
